FAERS Safety Report 24731690 (Version 1)
Quarter: 2024Q4

REPORT INFORMATION
  Report Type: Report from Study
  Country: US (occurrence: US)
  Receive Date: 20241213
  Receipt Date: 20241213
  Transmission Date: 20250115
  Serious: Yes (Hospitalization, Other)
  Sender: BOEHRINGER INGELHEIM
  Company Number: US-BoehringerIngelheim-2024-BI-037502

PATIENT
  Sex: Male

DRUGS (2)
  1. OFEV [Suspect]
     Active Substance: NINTEDANIB
     Indication: Idiopathic pulmonary fibrosis
     Dosage: WITH MEALS
     Route: 048
     Dates: start: 20231114
  2. OFEV [Suspect]
     Active Substance: NINTEDANIB
     Indication: Interstitial lung disease

REACTIONS (12)
  - COVID-19 [Not Recovered/Not Resolved]
  - Traumatic intracranial haemorrhage [Not Recovered/Not Resolved]
  - Cerebrovascular accident [Not Recovered/Not Resolved]
  - Prostate cancer [Not Recovered/Not Resolved]
  - Loss of consciousness [Not Recovered/Not Resolved]
  - Fall [Not Recovered/Not Resolved]
  - Depression [Not Recovered/Not Resolved]
  - Asthenia [Not Recovered/Not Resolved]
  - Cardiovascular disorder [Not Recovered/Not Resolved]
  - Diarrhoea [Unknown]
  - Back pain [Unknown]
  - Pain in extremity [Unknown]
